FAERS Safety Report 4579125-6 (Version None)
Quarter: 2005Q1

REPORT INFORMATION
  Report Type: 
  Country: None (occurrence: None)
  Receive Date: 20050121
  Receipt Date: 20040420
  Transmission Date: 20050727
  Serious: Yes (Hospitalization)
  Sender: FDA-Public Use
  Company Number: STA-AE-04-MTX-163

PATIENT
  Age: 73 Year
  Sex: Female

DRUGS (5)
  1. METHOTREXATE [Suspect]
     Indication: RHEUMATOID ARTHRITIS
     Dosage: 15 MG 1X PER 1 WK, ORAL
     Route: 048
     Dates: start: 20021001, end: 20031101
  2. PREDNISONE [Concomitant]
  3. DIOVAN [Concomitant]
  4. IBUPROFEN [Concomitant]
  5. TYLENOL [Concomitant]

REACTIONS (2)
  - DYSPNOEA [None]
  - INTERSTITIAL LUNG DISEASE [None]
